FAERS Safety Report 7325811-4 (Version None)
Quarter: 2011Q1

REPORT INFORMATION
  Report Type: 
  Country: None (occurrence: None)
  Receive Date: 20110302
  Receipt Date: 20110202
  Transmission Date: 20110831
  Serious: No
  Sender: FDA-Public Use
  Company Number: US-B.I. PHARMACEUTICALS,INC./RIDGEFIELD-2011-BP-03184BP

PATIENT
  Age: 79 Year
  Sex: Male

DRUGS (3)
  1. LOTENSIN [Concomitant]
     Indication: HYPERTENSION
  2. MIRAPEX [Suspect]
     Indication: PARKINSON'S DISEASE
     Dosage: 0.75 MG
     Route: 048
     Dates: start: 20100901
  3. CARBIDOPA [Concomitant]
     Indication: PARKINSON'S DISEASE

REACTIONS (1)
  - FLATULENCE [None]
